FAERS Safety Report 23177830 (Version 1)
Quarter: 2023Q4

REPORT INFORMATION
  Report Type: Spontaneous
  Country: US (occurrence: US)
  Receive Date: 20231113
  Receipt Date: 20231113
  Transmission Date: 20240110
  Serious: No
  Sender: FDA-Public Use
  Company Number: US-PERRIGO-23US011680

PATIENT
  Age: 86 Year
  Sex: Female
  Weight: 74.83 kg

DRUGS (6)
  1. POLYETHYLENE GLYCOL 3350 [Suspect]
     Active Substance: POLYETHYLENE GLYCOL 3350
     Indication: Constipation
     Dosage: 17 G, QD
     Route: 048
     Dates: start: 20231001, end: 20231004
  2. CARVEDILOL [Concomitant]
     Active Substance: CARVEDILOL
     Indication: Hypertension
     Dosage: 12.5 MG, BID
     Route: 065
  3. ROSUVASTATIN [Concomitant]
     Active Substance: ROSUVASTATIN
     Indication: Blood cholesterol increased
     Dosage: 20 MG, UNKNOWN
     Route: 065
  4. ASPIRIN [Concomitant]
     Active Substance: ASPIRIN
     Indication: Routine health maintenance
     Dosage: UNKNOWN, UNKNOWN
     Route: 065
  5. TYLENOL EXTRA STRENGTH [Concomitant]
     Active Substance: ACETAMINOPHEN
     Indication: Arthritis
     Dosage: 2, QAM
     Route: 065
  6. OMEPRAZOLE [Concomitant]
     Active Substance: OMEPRAZOLE
     Indication: Gastrooesophageal reflux disease
     Dosage: 40 MG, UNKNOWN
     Route: 065

REACTIONS (3)
  - Flatulence [Not Recovered/Not Resolved]
  - Abdominal pain [Not Recovered/Not Resolved]
  - Drug ineffective [Unknown]

NARRATIVE: CASE EVENT DATE: 20231001
